FAERS Safety Report 6639632-9 (Version None)
Quarter: 2010Q1

REPORT INFORMATION
  Report Type: 
  Country: None (occurrence: None)
  Receive Date: 20100301
  Receipt Date: 20090801
  Transmission Date: 20100710
  Serious: Yes (Hospitalization)
  Sender: FDA-Public Use
  Company Number: RB-18837-2009

PATIENT
  Sex: Female

DRUGS (4)
  1. SUBOXONE [Suspect]
     Indication: DRUG USE FOR UNKNOWN INDICATION
     Dosage: VARIOUS DOSES INCLUDING WEANING DOWN, DOSE INCREASED
     Dates: end: 20090101
  2. SUBOXONE [Suspect]
     Indication: DRUG USE FOR UNKNOWN INDICATION
     Dosage: VARIOUS DOSES INCLUDING WEANING DOWN, DOSE INCREASED
     Dates: start: 20090101
  3. SUBOXONE [Suspect]
     Indication: DRUG USE FOR UNKNOWN INDICATION
     Dosage: VARIOUS DOSES INCLUDING WEANING DOWN, DOSE INCREASED
     Dates: start: 20090807
  4. ACETAMINOPHEN [Suspect]
     Indication: DRUG USE FOR UNKNOWN INDICATION
     Dates: start: 20090807

REACTIONS (7)
  - ANXIETY [None]
  - DRUG DEPENDENCE [None]
  - DRUG TOXICITY [None]
  - DRUG WITHDRAWAL SYNDROME [None]
  - HEPATIC ENZYME INCREASED [None]
  - NEPHROLITHIASIS [None]
  - OVARIAN CYST [None]
